FAERS Safety Report 16863050 (Version 1)
Quarter: 2019Q3

REPORT INFORMATION
  Report Type: Spontaneous
  Country: US (occurrence: US)
  Receive Date: 20190927
  Receipt Date: 20190927
  Transmission Date: 20191005
  Serious: Yes (Hospitalization)
  Sender: FDA-Public Use
  Company Number: US-ALNYLAM PHARMACEUTICALS, INC.-ALN-2019-000712

PATIENT
  Age: 61 Year
  Sex: Male

DRUGS (1)
  1. ONPATTRO [Suspect]
     Active Substance: PATISIRAN SODIUM
     Indication: HEREDITARY NEUROPATHIC AMYLOIDOSIS
     Dosage: 20 MILLIGRAM, Q3W
     Route: 042
     Dates: start: 201901

REACTIONS (7)
  - Swelling [Unknown]
  - Malaise [Unknown]
  - Burning sensation [Unknown]
  - Pyrexia [Unknown]
  - Cellulitis [Unknown]
  - Erythema [Unknown]
  - Extravasation [Unknown]

NARRATIVE: CASE EVENT DATE: 20190913
